FAERS Safety Report 20836546 (Version 1)
Quarter: 2022Q2

REPORT INFORMATION
  Report Type: Report from Study
  Country: BR (occurrence: BR)
  Receive Date: 20220517
  Receipt Date: 20220517
  Transmission Date: 20220721
  Serious: Yes (Other)
  Sender: FDA-Public Use
  Company Number: BR-JNJFOC-20220523744

PATIENT
  Sex: Female
  Weight: 70 kg

DRUGS (1)
  1. INFLIXIMAB [Suspect]
     Active Substance: INFLIXIMAB
     Indication: Ankylosing spondylitis
     Dosage: 4 VIAL EVERY OTHER MONTH, LAST APPLICATION OF DOSE ON 05-APR-2022.
     Route: 042
     Dates: start: 20201027

REACTIONS (2)
  - Gastrointestinal carcinoma [Unknown]
  - Ankylosing spondylitis [Not Recovered/Not Resolved]
